FAERS Safety Report 5356042-5 (Version None)
Quarter: 2007Q2

REPORT INFORMATION
  Report Type: 
  Country: None (occurrence: None)
  Receive Date: 20070529
  Receipt Date: 20070217
  Transmission Date: 20071010
  Serious: Yes (Other)
  Sender: FDA-Public Use
  Company Number: 2006120395

PATIENT
  Age: 54 Year
  Sex: Female
  Weight: 121.6 kg

DRUGS (4)
  1. EXUBERA [Suspect]
     Indication: BLOOD GLUCOSE ABNORMAL
     Dosage: (6 MG,BEFORE MEALS),ORAL
     Route: 048
     Dates: start: 20060912, end: 20061017
  2. LASIX [Concomitant]
  3. ACTOS [Concomitant]
  4. IBUPROFEN [Concomitant]

REACTIONS (10)
  - BACK PAIN [None]
  - CHEST DISCOMFORT [None]
  - DYSPNOEA [None]
  - FATIGUE [None]
  - HEADACHE [None]
  - OEDEMA [None]
  - OEDEMA PERIPHERAL [None]
  - SENSATION OF PRESSURE [None]
  - SPIROMETRY ABNORMAL [None]
  - WEIGHT INCREASED [None]
